FAERS Safety Report 4776393-2 (Version None)
Quarter: 2005Q3

REPORT INFORMATION
  Report Type: 
  Country: None (occurrence: None)
  Receive Date: 20050921
  Receipt Date: 20050819
  Transmission Date: 20060218
  Serious: Yes (Hospitalization)
  Sender: FDA-Public Use
  Company Number: 12123

PATIENT
  Age: 48 Year
  Sex: Female
  Weight: 78 kg

DRUGS (8)
  1. METHOTREXATE [Suspect]
     Indication: BREAST CANCER
     Dosage: 90 MG IV
     Route: 042
     Dates: start: 20050323, end: 20050627
  2. FLUOROURACIL [Suspect]
     Indication: BREAST CANCER
     Dosage: 1100 MG UNK IV
     Route: 042
     Dates: start: 20050323, end: 20050627
  3. CYCLOPHOSPHAMIDE [Suspect]
     Indication: BREAST CANCER
     Dosage: 1400 MG IV
     Route: 042
     Dates: start: 20050323, end: 20050627
  4. DIHYDROCODEINE [Concomitant]
  5. METOCLOPRAMIDE [Concomitant]
  6. DEXAMETHASONE [Concomitant]
  7. GRANISETRON [Concomitant]
  8. DOMEPRIDONE [Concomitant]

REACTIONS (1)
  - NEUTROPENIC SEPSIS [None]
